FAERS Safety Report 11491313 (Version 1)
Quarter: 2015Q3

REPORT INFORMATION
  Report Type: Spontaneous
  Country: US (occurrence: US)
  Receive Date: 20150910
  Receipt Date: 20150910
  Transmission Date: 20151125
  Serious: No
  Sender: FDA-Public Use
  Company Number: US-BAYER-2015-418430

PATIENT
  Age: 74 Year
  Sex: Female
  Weight: 77.98 kg

DRUGS (4)
  1. ALBUTEROL NEBULIZER [Concomitant]
     Active Substance: ALBUTEROL
     Indication: ASTHMA
  2. METFORMIN [Concomitant]
     Active Substance: METFORMIN HYDROCHLORIDE
  3. CLARITIN [Suspect]
     Active Substance: LORATADINE
     Indication: NASAL POLYPS
     Dosage: 1 DF, QD
     Route: 048
  4. COVERA [Concomitant]
     Active Substance: VERAPAMIL HYDROCHLORIDE

REACTIONS (1)
  - Off label use [None]
